FAERS Safety Report 23538175 (Version 1)
Quarter: 2024Q1

REPORT INFORMATION
  Report Type: Spontaneous
  Country: BR (occurrence: BR)
  Receive Date: 20240219
  Receipt Date: 20240219
  Transmission Date: 20240409
  Serious: Yes (Life-Threatening, Other)
  Sender: FDA-Public Use
  Company Number: BR-Accord-407788

PATIENT
  Age: 64 Year
  Sex: Male

DRUGS (1)
  1. PACLITAXEL [Suspect]
     Active Substance: PACLITAXEL
     Indication: Product used for unknown indication
     Route: 042

REACTIONS (5)
  - Anaphylactic shock [Unknown]
  - Dyspnoea [Unknown]
  - Cyanosis central [Unknown]
  - Loss of consciousness [Unknown]
  - Urinary incontinence [Unknown]
